FAERS Safety Report 6832877-4 (Version None)
Quarter: 2010Q3

REPORT INFORMATION
  Report Type: 
  Country: None (occurrence: None)
  Receive Date: 20100712
  Receipt Date: 20070323
  Transmission Date: 20110219
  Serious: Yes (Other)
  Sender: FDA-Public Use
  Company Number: US-PFIZER INC-2007023329

PATIENT
  Sex: Male

DRUGS (2)
  1. CHANTIX [Suspect]
  2. ANTIHYPERTENSIVES [Concomitant]

REACTIONS (1)
  - SUICIDAL IDEATION [None]
